FAERS Safety Report 14327824 (Version 1)
Quarter: 2017Q4

REPORT INFORMATION
  Report Type: Spontaneous
  Country: VE (occurrence: VE)
  Receive Date: 20171227
  Receipt Date: 20171227
  Transmission Date: 20180321
  Serious: Yes (Other)
  Sender: FDA-Public Use
  Company Number: VE-BAYER-2017-208339

PATIENT
  Age: 7 Year
  Sex: Male

DRUGS (1)
  1. KOGENATE [Suspect]
     Active Substance: ANTIHEMOPHILIC FACTOR, HUMAN RECOMBINANT
     Indication: FACTOR VIII DEFICIENCY
     Dosage: ON DEMAND

REACTIONS (3)
  - Haemorrhage [None]
  - Anti factor VIII antibody positive [None]
  - Drug ineffective [None]
